FAERS Safety Report 15719921 (Version 1)
Quarter: 2018Q4

REPORT INFORMATION
  Report Type: Spontaneous
  Country: JP (occurrence: JP)
  Receive Date: 20181213
  Receipt Date: 20181213
  Transmission Date: 20190205
  Serious: Yes (Life-Threatening, Other)
  Sender: FDA-Public Use
  Company Number: JP-BAUSCH-2012VX001537

PATIENT
  Age: 66 Year
  Sex: Female

DRUGS (12)
  1. CYCLOPHOSPHAMIDE. [Suspect]
     Active Substance: CYCLOPHOSPHAMIDE
     Indication: BREAST CANCER
     Dosage: RECEIVED FOUR COURSES
     Route: 065
     Dates: start: 200608, end: 200702
  2. TAXOTERE [Suspect]
     Active Substance: DOCETAXEL
     Route: 048
     Dates: start: 20061109, end: 20070111
  3. CAPECITABINE. [Suspect]
     Active Substance: CAPECITABINE
     Indication: BREAST CANCER
     Route: 065
     Dates: start: 200703, end: 200705
  4. CAPECITABINE. [Suspect]
     Active Substance: CAPECITABINE
     Route: 065
     Dates: start: 200706, end: 200709
  5. FLUOROURACIL. [Suspect]
     Active Substance: FLUOROURACIL
     Indication: BREAST CANCER
     Dosage: RECEIVED FOUR COURSES
     Route: 065
     Dates: start: 200608, end: 200702
  6. TAXOTERE [Suspect]
     Active Substance: DOCETAXEL
     Indication: BREAST CANCER
     Dosage: RECEIVED FOUR COURSES
     Route: 065
     Dates: start: 200608
  7. CYCLOPHOSPHAMIDE. [Suspect]
     Active Substance: CYCLOPHOSPHAMIDE
     Route: 065
     Dates: start: 200703, end: 200705
  8. LETROZOLE. [Suspect]
     Active Substance: LETROZOLE
     Indication: BREAST CANCER
     Route: 065
     Dates: start: 200702
  9. ANASTROZOLE. [Suspect]
     Active Substance: ANASTROZOLE
     Indication: BREAST CANCER
     Route: 065
     Dates: start: 200804, end: 200810
  10. EPIRUBICIN [Suspect]
     Active Substance: EPIRUBICIN
     Indication: BREAST CANCER
     Dosage: RECEIVED FOUR COURSES
     Route: 065
     Dates: start: 200608, end: 200702
  11. TOREMIFENE [Suspect]
     Active Substance: TOREMIFENE
     Indication: BREAST CANCER
     Route: 065
     Dates: start: 200706, end: 200709
  12. TOREMIFENE [Suspect]
     Active Substance: TOREMIFENE
     Route: 065
     Dates: start: 200710, end: 200803

REACTIONS (2)
  - Acute myeloid leukaemia [Recovered/Resolved]
  - Pancytopenia [Recovered/Resolved]

NARRATIVE: CASE EVENT DATE: 20110802
